FAERS Safety Report 8247637-X (Version None)
Quarter: 2012Q1

REPORT INFORMATION
  Report Type: 
  Country: None (occurrence: None)
  Receive Date: 20120330
  Receipt Date: 20120326
  Transmission Date: 20120608
  Serious: Yes (Death)
  Sender: FDA-Public Use
  Company Number: US-CELGENEUS-163-21880-12030256

PATIENT
  Sex: Female

DRUGS (9)
  1. HYDROCHLOROTHIAZIDE [Concomitant]
     Route: 065
  2. REVLIMID [Suspect]
     Dosage: 10 MILLIGRAM
     Route: 048
     Dates: start: 20111001, end: 20120101
  3. NEXIUM [Concomitant]
     Dosage: 40 MILLIGRAM
     Route: 065
  4. METOPROLOL SUCCINATE [Concomitant]
     Dosage: 150
     Route: 065
  5. VALSARTAN [Concomitant]
     Route: 065
  6. VELCADE [Concomitant]
     Route: 065
  7. REVLIMID [Suspect]
     Indication: MULTIPLE MYELOMA
     Dosage: 10 MILLIGRAM
     Route: 048
     Dates: start: 20100901, end: 20110201
  8. GLIPIZIDE [Concomitant]
     Dosage: 5 MILLIGRAM
     Route: 065
  9. NORVASC [Concomitant]
     Dosage: 5 MILLIGRAM
     Route: 065

REACTIONS (1)
  - DEATH [None]
